FAERS Safety Report 4484832-X (Version None)
Quarter: 2004Q4

REPORT INFORMATION
  Report Type: 
  Country: None (occurrence: None)
  Receive Date: 20041025
  Receipt Date: 20041019
  Transmission Date: 20050328
  Serious: Yes (Life-Threatening)
  Sender: FDA-Public Use
  Company Number: US-MERCK-0410USA02991

PATIENT
  Age: 33 Year
  Sex: Female

DRUGS (2)
  1. VIOXX [Suspect]
     Indication: CANCER PAIN
     Route: 048
     Dates: end: 20040901
  2. LOESTRIN 1.5/30 [Concomitant]
     Route: 065

REACTIONS (1)
  - PALPITATIONS [None]
